FAERS Safety Report 13123163 (Version 1)
Quarter: 2017Q1

REPORT INFORMATION
  Report Type: Spontaneous
  Country: US (occurrence: US)
  Receive Date: 20170117
  Receipt Date: 20170117
  Transmission Date: 20170428
  Serious: No
  Sender: FDA-Public Use
  Company Number: US-PFIZER INC-2017016196

PATIENT

DRUGS (5)
  1. STADOL [Suspect]
     Active Substance: BUTORPHANOL TARTRATE
     Dosage: UNK
  2. TESTOSTERONE CIPIONATE [Suspect]
     Active Substance: TESTOSTERONE
     Dosage: UNK
  3. ANDRODERM [Suspect]
     Active Substance: TESTOSTERONE
     Dosage: UNK
  4. YOHIMBINE [Suspect]
     Active Substance: YOHIMBINE
     Dosage: UNK
  5. MORPHINE SULFATE. [Suspect]
     Active Substance: MORPHINE SULFATE
     Dosage: UNK

REACTIONS (1)
  - Drug hypersensitivity [Unknown]
